FAERS Safety Report 8171881-3 (Version None)
Quarter: 2012Q1

REPORT INFORMATION
  Report Type: 
  Country: None (occurrence: None)
  Receive Date: 20120113
  Receipt Date: 20110915
  Transmission Date: 20120608
  Serious: Yes (Other)
  Sender: FDA-Public Use
  Company Number: 2011S1000069

PATIENT
  Sex: Male
  Weight: 101.6057 kg

DRUGS (2)
  1. KRYSTEXXA [Suspect]
     Indication: GOUT
     Dosage: 8 MG;X1;IV ; X1;IV
     Route: 042
     Dates: start: 20110908, end: 20110908
  2. KRYSTEXXA [Suspect]
     Indication: GOUT
     Dosage: 8 MG;X1;IV ; X1;IV
     Route: 042
     Dates: start: 20110822, end: 20110822

REACTIONS (1)
  - INFUSION RELATED REACTION [None]
